FAERS Safety Report 8177581-8 (Version None)
Quarter: 2012Q1

REPORT INFORMATION
  Report Type: 
  Country: None (occurrence: None)
  Receive Date: 20120301
  Receipt Date: 20120217
  Transmission Date: 20120608
  Serious: Yes (Hospitalization, Other)
  Sender: FDA-Public Use
  Company Number: PHHY2012CA012016

PATIENT
  Sex: Female

DRUGS (2)
  1. SANDOSTATIN [Suspect]
     Indication: HYPOGLYCAEMIA
     Dosage: 50 UG, QID
     Route: 058
     Dates: start: 20110801, end: 20120101
  2. SANDOSTATIN [Suspect]
     Dosage: UNK UKN, 6QD
     Route: 058
     Dates: start: 20120101

REACTIONS (6)
  - HYPOGLYCAEMIA [None]
  - POST GASTRIC SURGERY SYNDROME [None]
  - TREMOR [None]
  - MALNUTRITION [None]
  - DEHYDRATION [None]
  - LOSS OF CONSCIOUSNESS [None]
